FAERS Safety Report 5079153-0 (Version None)
Quarter: 2006Q3

REPORT INFORMATION
  Report Type: 
  Country: None (occurrence: None)
  Receive Date: 20060814
  Receipt Date: 20060810
  Transmission Date: 20061208
  Serious: Yes (Other)
  Sender: FDA-Public Use
  Company Number: US-GLAXOSMITHKLINE-A0616108A

PATIENT
  Sex: Male

DRUGS (6)
  1. COREG [Suspect]
     Indication: HYPERTENSION
     Dosage: 2TAB SINGLE DOSE
     Route: 048
     Dates: start: 20060501
  2. AMIODARONE HCL [Concomitant]
  3. NORVASC [Concomitant]
  4. ATACAND [Concomitant]
  5. NEXIUM [Concomitant]
  6. ASPARIN [Concomitant]

REACTIONS (4)
  - BLOOD PRESSURE INCREASED [None]
  - EYE DISORDER [None]
  - EYE HAEMORRHAGE [None]
  - FEELING HOT [None]
